FAERS Safety Report 6789606-2 (Version None)
Quarter: 2010Q2

REPORT INFORMATION
  Report Type: 
  Country: None (occurrence: None)
  Receive Date: 20100624
  Receipt Date: 20100615
  Transmission Date: 20101027
  Serious: No
  Sender: FDA-Public Use
  Company Number: US-BIOGENIDEC-2010BI020581

PATIENT
  Age: 33 Year
  Sex: Male

DRUGS (2)
  1. TYSABRI [Suspect]
     Indication: MULTIPLE SCLEROSIS
     Route: 042
     Dates: start: 20100414
  2. CYMBALTA [Concomitant]
     Indication: DRUG USE FOR UNKNOWN INDICATION

REACTIONS (15)
  - BLISTER [None]
  - BRADYPHRENIA [None]
  - DECREASED INTEREST [None]
  - FATIGUE [None]
  - FEELING ABNORMAL [None]
  - FEELING HOT [None]
  - INSOMNIA [None]
  - JOINT RANGE OF MOTION DECREASED [None]
  - MOBILITY DECREASED [None]
  - OEDEMA PERIPHERAL [None]
  - PERIPHERAL COLDNESS [None]
  - SENSORY DISTURBANCE [None]
  - SKIN IRRITATION [None]
  - SOMNOLENCE [None]
  - URTICARIA [None]
